FAERS Safety Report 4935255-8 (Version None)
Quarter: 2006Q1

REPORT INFORMATION
  Report Type: 
  Country: None (occurrence: None)
  Receive Date: 20060307
  Receipt Date: 20001113
  Transmission Date: 20060701
  Serious: Yes (Disabling)
  Sender: FDA-Public Use
  Company Number: US-MERCK-00111254

PATIENT
  Age: 59 Year
  Sex: Male
  Weight: 111 kg

DRUGS (2)
  1. VIOXX [Suspect]
     Indication: ARTHRITIS
     Route: 048
     Dates: start: 20000301, end: 20020101
  2. CYTOTEC [Concomitant]
     Route: 065

REACTIONS (6)
  - CORONARY ARTERY OCCLUSION [None]
  - DYSPEPSIA [None]
  - HERNIA [None]
  - HERNIA REPAIR [None]
  - NEOPLASM MALIGNANT [None]
  - TRANSIENT ISCHAEMIC ATTACK [None]
